FAERS Safety Report 10882196 (Version 1)
Quarter: 2015Q1

REPORT INFORMATION
  Report Type: Spontaneous
  Country: US (occurrence: None)
  Receive Date: 20150226
  Receipt Date: 20150226
  Transmission Date: 20150721
  Serious: Yes (Hospitalization)
  Sender: FDA-Public Use
  Company Number: None

PATIENT
  Age: 68 Year
  Sex: Female
  Weight: 50.91 kg

DRUGS (1)
  1. TAXOL [Suspect]
     Active Substance: PACLITAXEL
     Dates: start: 20140606, end: 20140801

REACTIONS (4)
  - Enterococcus test positive [None]
  - Stoma site infection [None]
  - Sepsis [None]
  - Urinary tract infection fungal [None]

NARRATIVE: CASE EVENT DATE: 20140802
